FAERS Safety Report 13757219 (Version 1)
Quarter: 2017Q3

REPORT INFORMATION
  Report Type: Spontaneous
  Country: US (occurrence: US)
  Receive Date: 20170714
  Receipt Date: 20170714
  Transmission Date: 20171127
  Serious: No
  Sender: FDA-Public Use
  Company Number: None

PATIENT
  Age: 27 Year
  Sex: Male
  Weight: 90.9 kg

DRUGS (1)
  1. HUMIRA [Suspect]
     Active Substance: ADALIMUMAB
     Indication: PSORIASIS
     Dosage: ?          OTHER STRENGTH:MG;QUANTITY:1 INJECTION(S);OTHER FREQUENCY:BIWEEKLY;?
     Route: 058
     Dates: start: 20170202

REACTIONS (3)
  - Pain [None]
  - Burning sensation [None]
  - Injection site reaction [None]

NARRATIVE: CASE EVENT DATE: 20170714
